FAERS Safety Report 23881458 (Version 2)
Quarter: 2024Q3

REPORT INFORMATION
  Report Type: Report from Study
  Country: US (occurrence: US)
  Receive Date: 20240521
  Receipt Date: 20240703
  Transmission Date: 20241017
  Serious: Yes (Hospitalization)
  Sender: EISAI
  Company Number: US-Eisai-EC-2024-165944

PATIENT
  Age: 54 Year
  Sex: Female

DRUGS (2)
  1. LENVIMA [Suspect]
     Active Substance: LENVATINIB
     Indication: Renal cancer
     Route: 048
     Dates: start: 20240505, end: 20240505
  2. LENVIMA [Suspect]
     Active Substance: LENVATINIB
     Route: 048
     Dates: start: 20240515

REACTIONS (3)
  - Dyspnoea [Unknown]
  - Abdominal pain [Unknown]
  - Blood pressure increased [Unknown]

NARRATIVE: CASE EVENT DATE: 20240101
